FAERS Safety Report 4357442-2 (Version None)
Quarter: 2004Q2

REPORT INFORMATION
  Report Type: 
  Country: None (occurrence: None)
  Receive Date: 20040513
  Receipt Date: 20040506
  Transmission Date: 20050107
  Serious: Yes (Hospitalization)
  Sender: FDA-Public Use
  Company Number: AT-BRISTOL-MYERS SQUIBB COMPANY-12580403

PATIENT
  Age: 74 Year
  Sex: Male

DRUGS (8)
  1. CETUXIMAB [Suspect]
     Indication: COLORECTAL CANCER METASTATIC
     Dosage: INTERRUPTED DUE TO EVENTS, 1ST INFUSION 18-MAR-04, ALSO GIVEN ON 14-APR-04 (460 MG)
     Route: 042
     Dates: start: 20040325, end: 20040325
  2. IRINOTECAN [Suspect]
     Indication: COLORECTAL CANCER METASTATIC
     Dosage: 1ST INFUSION, ALSO GIVEN ON 19-APR-04. INTERRUTPED DUE TO EVENTS
     Route: 042
     Dates: start: 20040318, end: 20040318
  3. METOPROLOL [Concomitant]
     Route: 048
  4. ASPIRIN [Concomitant]
     Route: 048
  5. PANTOPRAZOLE [Concomitant]
     Route: 048
  6. LOPERAMIDE HCL [Concomitant]
     Route: 048
  7. TROPISETRON [Concomitant]
     Dosage: 5 MG/DAY ORALLY AS NEEDED
     Route: 048
     Dates: start: 20040319
  8. TROPISETRON [Concomitant]
     Dosage: 2 MG/DAY IV AS NEEDED
     Route: 042
     Dates: start: 20040318

REACTIONS (4)
  - DIARRHOEA [None]
  - FATIGUE [None]
  - PNEUMONIA [None]
  - PYREXIA [None]
